FAERS Safety Report 17259445 (Version 1)
Quarter: 2020Q1

REPORT INFORMATION
  Report Type: Spontaneous
  Country: JP (occurrence: JP)
  Receive Date: 20200110
  Receipt Date: 20200110
  Transmission Date: 20200409
  Serious: Yes (Hospitalization)
  Sender: FDA-Public Use
  Company Number: JP-BAUSCH-BL-2020-000108

PATIENT
  Age: 38 Year
  Sex: Female

DRUGS (6)
  1. DOCETAXEL. [Suspect]
     Active Substance: DOCETAXEL
     Indication: BREAST CANCER STAGE II
     Dosage: EVERY 3 WEEKS
     Route: 065
  2. PEGFILGRASTIM [Concomitant]
     Active Substance: PEGFILGRASTIM
     Indication: BREAST CANCER STAGE II
     Dosage: ON DAY 2, REPEATED EVERY TWO WEEKS; 4 COURSES OF TREATMENT
  3. ADRIAMYCIN [Suspect]
     Active Substance: DOXORUBICIN HYDROCHLORIDE
     Indication: BREAST CANCER STAGE II
     Dosage: ON DAY 1, REPEATED EVERY TWO WEEKS; RECEIVED 4 COURSES OF TREATMENT
     Route: 065
  4. CYCLOPHOSPHAMIDE. [Suspect]
     Active Substance: CYCLOPHOSPHAMIDE
     Indication: BREAST CANCER STAGE II
     Dosage: ON DAY 1, REPEATED EVERY TWO WEEKS;RECEIVED 4 COURSES OF TREATMENT
     Route: 065
  5. DEXAMETHASONE. [Suspect]
     Active Substance: DEXAMETHASONE
     Indication: BREAST CANCER STAGE II
     Dosage: ON DAYS 2- 4, REPEATED EVERY TWO WEEKS; SHE RECEIVED 4 COURSES OF TREATMENT
     Route: 065
  6. DEXAMETHASONE. [Suspect]
     Active Substance: DEXAMETHASONE
     Indication: BREAST CANCER STAGE II
     Dosage: ON DAY 1; REPEATED EVERY TWO WEEKS; SHE RECEIVED 4 COURSES OF TREATMENT
     Route: 065

REACTIONS (2)
  - Pneumocystis jirovecii pneumonia [Recovering/Resolving]
  - Pneumonitis [Recovering/Resolving]
